FAERS Safety Report 12127039 (Version 2)
Quarter: 2016Q2

REPORT INFORMATION
  Report Type: Report from Study
  Country: BR (occurrence: BR)
  Receive Date: 20160229
  Receipt Date: 20160527
  Transmission Date: 20160815
  Serious: Yes (Hospitalization, Other)
  Sender: FDA-Public Use
  Company Number: BR-ABBVIE-16K-020-1531202-00

PATIENT
  Age: 32 Year
  Sex: Female
  Weight: 42 kg

DRUGS (6)
  1. MESALAZINE DCI [Concomitant]
     Indication: COLITIS ULCERATIVE
     Route: 048
     Dates: start: 201505
  2. DONAREN [Concomitant]
     Active Substance: TRAZODONE HYDROCHLORIDE
     Indication: DEPRESSION
     Dosage: ONE TABLET
     Route: 048
     Dates: start: 201509
  3. HUMIRA [Suspect]
     Active Substance: ADALIMUMAB
     Dosage: LOADING DOSE WEEK TWO
     Route: 058
     Dates: start: 201512, end: 201512
  4. CITALOPRAM [Concomitant]
     Active Substance: CITALOPRAM HYDROBROMIDE
     Indication: DEPRESSION
     Dosage: ONE TABLET
     Route: 048
     Dates: start: 201505
  5. HUMIRA [Suspect]
     Active Substance: ADALIMUMAB
     Indication: COLITIS ULCERATIVE
     Dosage: LOADING DOSE WEEK ZERO
     Route: 058
     Dates: start: 20151215, end: 20151215
  6. HUMIRA [Suspect]
     Active Substance: ADALIMUMAB
     Dosage: MAINTENANCE DOSES
     Route: 058
     Dates: start: 2016, end: 201602

REACTIONS (15)
  - Weight decreased [Recovering/Resolving]
  - Infection [Unknown]
  - Inflammation [Not Recovered/Not Resolved]
  - Panic attack [Not Recovered/Not Resolved]
  - Appendicitis [Unknown]
  - Abdominal pain upper [Unknown]
  - Abdominal pain [Not Recovered/Not Resolved]
  - Abdominal pain [Not Recovered/Not Resolved]
  - Anxiety [Unknown]
  - Diarrhoea [Not Recovered/Not Resolved]
  - Pain [Not Recovered/Not Resolved]
  - Drug ineffective [Unknown]
  - Depression [Not Recovered/Not Resolved]
  - Anaemia [Unknown]
  - Proctitis [Not Recovered/Not Resolved]

NARRATIVE: CASE EVENT DATE: 201512
